FAERS Safety Report 20054743 (Version 1)
Quarter: 2021Q4

REPORT INFORMATION
  Report Type: Spontaneous
  Country: US (occurrence: US)
  Receive Date: 20211110
  Receipt Date: 20211110
  Transmission Date: 20220303
  Serious: Yes (Other)
  Sender: FDA-Public Use
  Company Number: US-ViiV Healthcare Limited-US2021GSK227131

PATIENT
  Age: 45 Year
  Sex: Male

DRUGS (2)
  1. TRIUMEQ [Suspect]
     Active Substance: ABACAVIR SULFATE\DOLUTEGRAVIR SODIUM\LAMIVUDINE
     Indication: Acquired immunodeficiency syndrome
     Dosage: UNK
  2. AMPHOTERICIN B [Concomitant]
     Active Substance: AMPHOTERICIN B
     Indication: Visceral leishmaniasis
     Dosage: UNK

REACTIONS (9)
  - Immune reconstitution inflammatory syndrome [Unknown]
  - Visceral leishmaniasis [Unknown]
  - Hypercalcaemia [Recovered/Resolved]
  - Decreased appetite [Recovered/Resolved]
  - Weight decreased [Unknown]
  - Malaise [Recovered/Resolved]
  - Acute kidney injury [Recovered/Resolved]
  - Pancytopenia [Unknown]
  - Granuloma [Unknown]
